FAERS Safety Report 4627172-8 (Version None)
Quarter: 2005Q1

REPORT INFORMATION
  Report Type: 
  Country: None (occurrence: None)
  Receive Date: 20050331
  Receipt Date: 20050317
  Transmission Date: 20050727
  Serious: Yes (Hospitalization)
  Sender: FDA-Public Use
  Company Number: 213046

PATIENT
  Age: 49 Year
  Sex: Male
  Weight: 71.2 kg

DRUGS (10)
  1. AVASTIN [Suspect]
     Indication: COLON CANCER METASTATIC
     Dosage: 350 MG, Q2W, INTRAVENOUS
     Route: 042
     Dates: start: 20041123, end: 20041207
  2. FLUOROURACIL [Concomitant]
  3. LEUCOVORIN CALCIUM [Concomitant]
  4. OXYCONTIN [Concomitant]
  5. TRAZODONE (TRAZODONE HYDROCHLORIDE) [Concomitant]
  6. PAXIL [Concomitant]
  7. XANAX [Concomitant]
  8. AMBIEN [Concomitant]
  9. OXYCODONE (OXYCODONE) [Concomitant]
  10. CLARITIN [Concomitant]

REACTIONS (3)
  - BLOOD POTASSIUM DECREASED [None]
  - PNEUMATOSIS CYSTOIDES INTESTINALIS [None]
  - X-RAY ABNORMAL [None]
